FAERS Safety Report 17846211 (Version 1)
Quarter: 2020Q2

REPORT INFORMATION
  Report Type: Spontaneous
  Country: US (occurrence: US)
  Receive Date: 20200601
  Receipt Date: 20200601
  Transmission Date: 20200714
  Serious: No
  Sender: FDA-Public Use
  Company Number: None

PATIENT
  Age: 44 Year
  Sex: Male

DRUGS (1)
  1. MAVYRET [Suspect]
     Active Substance: GLECAPREVIR\PIBRENTASVIR
     Indication: HEPATITIS VIRAL
     Route: 048
     Dates: start: 20200403

REACTIONS (3)
  - Abdominal pain [None]
  - Haemorrhage [None]
  - Ocular hyperaemia [None]

NARRATIVE: CASE EVENT DATE: 20200429
